FAERS Safety Report 25605703 (Version 1)
Quarter: 2025Q3

REPORT INFORMATION
  Report Type: Spontaneous
  Country: US (occurrence: US)
  Receive Date: 20250725
  Receipt Date: 20250725
  Transmission Date: 20251021
  Serious: Yes (Death, Life-Threatening, Hospitalization)
  Sender: COSETTE PHARMACEUTICALS INC
  Company Number: US-COSETTE-CP2025US000707

PATIENT
  Age: 68 Year
  Sex: Male

DRUGS (1)
  1. ACETAMINOPHEN [Suspect]
     Active Substance: ACETAMINOPHEN
     Indication: Product used for unknown indication
     Route: 065

REACTIONS (18)
  - Acute hepatic failure [Fatal]
  - Shock [Fatal]
  - Pulse absent [Fatal]
  - Toxicity to various agents [Fatal]
  - Upper gastrointestinal haemorrhage [Unknown]
  - Metabolic encephalopathy [Unknown]
  - Hepatic encephalopathy [Unknown]
  - Acute kidney injury [Unknown]
  - Coagulopathy [Unknown]
  - Condition aggravated [Unknown]
  - Hypotension [Unknown]
  - Anaemia [Unknown]
  - Haematoma [Unknown]
  - Pancreatic cyst [Unknown]
  - Ascites [Unknown]
  - Abdominal hernia [Unknown]
  - Generalised oedema [Unknown]
  - Overdose [Unknown]
